FAERS Safety Report 9536825 (Version 1)
Quarter: 2013Q3

REPORT INFORMATION
  Report Type: Spontaneous
  Country: US (occurrence: None)
  Receive Date: 20130918
  Receipt Date: 20130918
  Transmission Date: 20140515
  Serious: Yes (Hospitalization)
  Sender: FDA-Public Use
  Company Number: None

PATIENT
  Age: 48 Year
  Sex: Female
  Weight: 60 kg

DRUGS (2)
  1. BEVACIZUMAB [Suspect]
  2. PEMETREXED [Suspect]

REACTIONS (6)
  - Anaemia [None]
  - Mucosal inflammation [None]
  - Pancytopenia [None]
  - Febrile neutropenia [None]
  - Nausea [None]
  - Weight decreased [None]
